FAERS Safety Report 10508648 (Version 2)
Quarter: 2014Q4

REPORT INFORMATION
  Report Type: Report from Study
  Country: US (occurrence: US)
  Receive Date: 20141009
  Receipt Date: 20141009
  Transmission Date: 20150528
  Serious: Yes (Other)
  Sender: FDA-Public Use
  Company Number: US-SA-2014SA096191

PATIENT
  Age: 23 Year
  Sex: Female

DRUGS (2)
  1. AUBAGIO [Suspect]
     Active Substance: TERIFLUNOMIDE
     Indication: MULTIPLE SCLEROSIS
     Route: 048
     Dates: start: 20140617
  2. COPAXONE [Concomitant]
     Active Substance: GLATIRAMER ACETATE
     Indication: MULTIPLE SCLEROSIS
     Dosage: STOP DATE AUG-2014
     Dates: start: 201107, end: 201408

REACTIONS (4)
  - Hepatic enzyme increased [Unknown]
  - Pain in extremity [Unknown]
  - Alopecia [Unknown]
  - Cyst removal [Unknown]

NARRATIVE: CASE EVENT DATE: 2014
